FAERS Safety Report 18573681 (Version 1)
Quarter: 2020Q4

REPORT INFORMATION
  Report Type: Other
  Country: US (occurrence: US)
  Receive Date: 20201203
  Receipt Date: 20201203
  Transmission Date: 20210114
  Serious: Yes (Other)
  Sender: FDA-Public Use
  Company Number: US-ROCHE-2720942

PATIENT

DRUGS (1)
  1. TOCILIZUMAB. [Suspect]
     Active Substance: TOCILIZUMAB
     Indication: COVID-19
     Dosage: 380 MG, 400 MG, 580 MG, 800 MG.
     Route: 042

REACTIONS (7)
  - Neutropenia [Unknown]
  - Pneumonia [Unknown]
  - Intentional product use issue [Unknown]
  - Thrombocytopenia [Unknown]
  - Bacteraemia [Unknown]
  - Transaminases increased [Unknown]
  - Off label use [Unknown]
